FAERS Safety Report 4727369-2 (Version None)
Quarter: 2005Q3

REPORT INFORMATION
  Report Type: 
  Country: None (occurrence: None)
  Receive Date: 20050728
  Receipt Date: 20050428
  Transmission Date: 20060218
  Serious: Yes (Hospitalization)
  Sender: FDA-Public Use
  Company Number: US-MERCK-0505USA00242

PATIENT
  Age: 69 Year
  Sex: Male
  Weight: 74 kg

DRUGS (18)
  1. VIOXX [Suspect]
     Indication: ARTHRALGIA
     Route: 048
     Dates: start: 20000501, end: 20040901
  2. VIOXX [Suspect]
     Route: 048
  3. NAPROXEN [Concomitant]
     Route: 065
     Dates: start: 19971101, end: 20000501
  4. VOLTAREN [Concomitant]
     Route: 065
     Dates: start: 20010601, end: 20010601
  5. CELEBREX [Concomitant]
     Route: 065
     Dates: start: 19990501, end: 20000501
  6. ZOCOR [Concomitant]
     Route: 065
     Dates: start: 19950101
  7. ASPIRIN [Concomitant]
     Route: 065
  8. VITAMIN E [Concomitant]
     Route: 065
  9. ASCORBIC ACID [Concomitant]
     Route: 065
  10. GLUCOSAMINE [Concomitant]
     Route: 065
  11. CHONDROITIN [Concomitant]
     Route: 065
  12. MEVACOR [Concomitant]
     Route: 065
     Dates: start: 19990601
  13. CLOTRIMAZOLE [Concomitant]
     Route: 065
  14. BECONASE [Concomitant]
     Route: 065
  15. FLUNISOLIDE [Concomitant]
     Route: 065
  16. HYTRIN [Concomitant]
     Route: 065
  17. NABUMETONE [Concomitant]
     Route: 065
  18. MAXZIDE [Concomitant]
     Route: 065

REACTIONS (17)
  - ARTHROPATHY [None]
  - BENIGN PROSTATIC HYPERPLASIA [None]
  - BLOOD PRESSURE INCREASED [None]
  - CEREBROVASCULAR ACCIDENT [None]
  - DILATATION ATRIAL [None]
  - EJECTION FRACTION DECREASED [None]
  - EXTRASYSTOLES [None]
  - GLAUCOMA [None]
  - HEMIPARESIS [None]
  - HERNIA [None]
  - HYPERLIPIDAEMIA [None]
  - HYPERTENSION [None]
  - INFLUENZA LIKE ILLNESS [None]
  - LACUNAR INFARCTION [None]
  - MITRAL VALVE INCOMPETENCE [None]
  - NEOPLASM MALIGNANT [None]
  - SKIN LACERATION [None]
